FAERS Safety Report 20933663 (Version 2)
Quarter: 2022Q3

REPORT INFORMATION
  Report Type: Spontaneous
  Country: AT (occurrence: AT)
  Receive Date: 20220608
  Receipt Date: 20220813
  Transmission Date: 20221027
  Serious: Yes (Hospitalization, Other)
  Sender: FDA-Public Use
  Company Number: AT-BoehringerIngelheim-2022-BI-175206

PATIENT
  Age: 63 Year
  Sex: Male
  Weight: 80 kg

DRUGS (1)
  1. PRADAXA [Suspect]
     Active Substance: DABIGATRAN ETEXILATE MESYLATE
     Indication: Cerebrovascular accident prophylaxis
     Dates: start: 202201, end: 202205

REACTIONS (2)
  - Epilepsy [Recovered/Resolved]
  - Anticoagulation drug level below therapeutic [Unknown]

NARRATIVE: CASE EVENT DATE: 20220519
